FAERS Safety Report 8428650-6 (Version None)
Quarter: 2012Q2

REPORT INFORMATION
  Report Type: 
  Country: None (occurrence: None)
  Receive Date: 20120606
  Receipt Date: 20120524
  Transmission Date: 20120825
  Serious: Yes (Life-Threatening)
  Sender: FDA-Public Use
  Company Number: 1298899

PATIENT
  Age: 71 Year
  Sex: Female

DRUGS (16)
  1. BISOPROLOL FUMARATE [Concomitant]
  2. SODIUM BICARBONATE [Concomitant]
  3. ACETAMINOPHEN [Concomitant]
  4. CEFTAZIDIME [Suspect]
     Indication: URINARY TRACT INFECTION BACTERIAL
     Dosage: 2 G GRAM(S), 1 DAY, INTRAVENOUS BOLUS
     Route: 040
     Dates: end: 20120507
  5. (ALFACALCIDOL) [Concomitant]
  6. SIMVASTATIN [Concomitant]
  7. CALCIUM CARBONATE [Concomitant]
  8. (GENERAL NUTRIENTS) [Concomitant]
  9. LEVOTHYROXINE SODIUM [Concomitant]
  10. ISOSORBIDE MONONITRATE [Concomitant]
  11. FUROSEMIDE [Concomitant]
  12. ASPIRIN [Concomitant]
  13. BUTRANS [Concomitant]
  14. (GLICLAZIDE) [Concomitant]
  15. LANSOPRAZOLE [Concomitant]
  16. ARANESP [Concomitant]

REACTIONS (12)
  - APNOEA [None]
  - NEUROLOGICAL DECOMPENSATION [None]
  - SOMNOLENCE [None]
  - MALAISE [None]
  - BLOOD GASES ABNORMAL [None]
  - UNRESPONSIVE TO STIMULI [None]
  - INCORRECT DOSE ADMINISTERED [None]
  - COMA [None]
  - HAEMODIALYSIS [None]
  - MEDICATION ERROR [None]
  - BLOOD CREATININE INCREASED [None]
  - CONVULSION [None]
